FAERS Safety Report 18565582 (Version 2)
Quarter: 2021Q2

REPORT INFORMATION
  Report Type: Spontaneous
  Country: US (occurrence: US)
  Receive Date: 20201201
  Receipt Date: 20210414
  Transmission Date: 20210717
  Serious: No
  Sender: FDA-Public Use
  Company Number: US-PFIZER INC-2020472883

PATIENT
  Age: 65 Year
  Sex: Male

DRUGS (1)
  1. XELJANZ XR [Suspect]
     Active Substance: TOFACITINIB CITRATE
     Indication: RHEUMATOID ARTHRITIS
     Dosage: 11 MG, DAILY
     Route: 048
     Dates: start: 2018

REACTIONS (4)
  - Back pain [Not Recovered/Not Resolved]
  - Therapeutic product effect decreased [Unknown]
  - Prostatic specific antigen increased [Not Recovered/Not Resolved]
  - Pain in extremity [Not Recovered/Not Resolved]
